FAERS Safety Report 13650328 (Version 2)
Quarter: 2017Q4

REPORT INFORMATION
  Report Type: Report from Study
  Country: TR (occurrence: TR)
  Receive Date: 20170614
  Receipt Date: 20171012
  Transmission Date: 20180320
  Serious: Yes (Other)
  Sender: FDA-Public Use
  Company Number: TR-SUN PHARMACEUTICAL INDUSTRIES LTD-2017RR-140802

PATIENT
  Age: 15 Year
  Sex: Male

DRUGS (4)
  1. RISPERIDONE. [Suspect]
     Active Substance: RISPERIDONE
     Indication: SCHIZOPHRENIFORM DISORDER
     Dosage: USED IN THE FIRST STAGE, BEFORE OLANZAPINE
     Route: 065
  2. OLANZAPINE. [Suspect]
     Active Substance: OLANZAPINE
     Indication: SCHIZOPHRENIFORM DISORDER
     Dosage: GRADUALLY INCREASED TO 20 MG/DAY IN 2 WEEKS
     Route: 065
  3. URSODEOXYCHOLIC ACID [Concomitant]
     Active Substance: URSODIOL
     Indication: HEPATOTOXICITY
     Dosage: 250 MG, BID
     Route: 065
  4. VITAMIN E [Concomitant]
     Active Substance: .ALPHA.-TOCOPHEROL
     Indication: HEPATOTOXICITY
     Dosage: 400 IU/DAY, QD
     Route: 065

REACTIONS (2)
  - Drug-induced liver injury [Recovered/Resolved]
  - Extrapyramidal disorder [Recovering/Resolving]
